FAERS Safety Report 17644283 (Version 1)
Quarter: 2020Q2

REPORT INFORMATION
  Report Type: Spontaneous
  Country: US (occurrence: US)
  Receive Date: 20200407
  Receipt Date: 20200407
  Transmission Date: 20200713
  Serious: No
  Sender: FDA-Public Use
  Company Number: None

PATIENT
  Age: 63 Year
  Sex: Male
  Weight: 70 kg

DRUGS (1)
  1. EZETIMIBE) EZETIMIBE 10MG TAB) [Suspect]
     Active Substance: EZETIMIBE
     Indication: HYPERLIPIDAEMIA
     Route: 048
     Dates: start: 20200109, end: 20200116

REACTIONS (3)
  - Rash [None]
  - Pruritus [None]
  - Paraesthesia [None]

NARRATIVE: CASE EVENT DATE: 20200116
